FAERS Safety Report 23263368 (Version 1)
Quarter: 2023Q4

REPORT INFORMATION
  Report Type: Spontaneous
  Country: CZ (occurrence: None)
  Receive Date: 20231205
  Receipt Date: 20231205
  Transmission Date: 20240110
  Serious: Yes (Other)
  Sender: FDA-Public Use
  Company Number: 2023A273601

PATIENT
  Age: 70 Year
  Sex: Male

DRUGS (2)
  1. DURVALUMAB [Suspect]
     Active Substance: DURVALUMAB
     Indication: Small cell lung cancer
     Dosage: UNKNOWN
     Route: 042
  2. ETOPOSSIDE [Concomitant]

REACTIONS (16)
  - Metastases to central nervous system [Unknown]
  - Brain oedema [Unknown]
  - Hepatic enzyme increased [Unknown]
  - Dyspnoea [Unknown]
  - Dyspnoea exertional [Unknown]
  - Fatigue [Unknown]
  - Haemoptysis [Unknown]
  - Weight decreased [Unknown]
  - Chest pain [Unknown]
  - Lymphadenopathy [Unknown]
  - Metastases to liver [Unknown]
  - Metastases to lymph nodes [Unknown]
  - Metastases to pancreas [Unknown]
  - Metastases to adrenals [Unknown]
  - Metastases to bone [Unknown]
  - Anaemia [Unknown]

NARRATIVE: CASE EVENT DATE: 20230601
